FAERS Safety Report 7822062-1 (Version None)
Quarter: 2011Q4

REPORT INFORMATION
  Report Type: 
  Country: None (occurrence: None)
  Receive Date: 20111018
  Receipt Date: 20111011
  Transmission Date: 20120403
  Serious: Yes (Hospitalization, Other)
  Sender: FDA-Public Use
  Company Number: PHHY2011JP86370

PATIENT
  Age: 74 Year
  Sex: Female

DRUGS (2)
  1. REBAMIPIDE [Concomitant]
     Dosage: UNK UKN, UNK
     Route: 048
  2. DICLOFENAC SODIUM [Suspect]
     Indication: ARTHRALGIA
     Dosage: UNK
     Route: 048
     Dates: start: 20110501

REACTIONS (7)
  - PRURITUS GENERALISED [None]
  - SHOCK [None]
  - ANAPHYLACTIC SHOCK [None]
  - CORONARY ARTERY STENOSIS [None]
  - LOSS OF CONSCIOUSNESS [None]
  - BLOOD PRESSURE DECREASED [None]
  - ELECTROCARDIOGRAM ST SEGMENT ELEVATION [None]
